FAERS Safety Report 17560813 (Version 1)
Quarter: 2020Q1

REPORT INFORMATION
  Report Type: Spontaneous
  Country: US (occurrence: US)
  Receive Date: 20200311
  Receipt Date: 20200311
  Transmission Date: 20200409
  Serious: Yes (Life-Threatening)
  Sender: FDA-Public Use
  Company Number: None

PATIENT
  Sex: Female
  Weight: 77.11 kg

DRUGS (16)
  1. VITAMIN B-COMPLEX [Concomitant]
     Active Substance: DEXPANTHENOL\NIACINAMIDE\PYRIDOXINE HYDROCHLORIDE\RIBOFLAVIN 5^-PHOSPHATE SODIUM\THIAMINE HYDROCHLORIDE
  2. SYNTHROID [Suspect]
     Active Substance: LEVOTHYROXINE SODIUM
     Indication: HYPOTHYROIDISM
     Route: 048
     Dates: start: 1998, end: 2010
  3. LUTEIN [Concomitant]
     Active Substance: LUTEIN
  4. CENTRUM [Concomitant]
     Active Substance: VITAMINS
  5. BIOFLAVONOIDS [Concomitant]
     Active Substance: BIOFLAVONOIDS
  6. PREMARIN [Concomitant]
     Active Substance: ESTROGENS, CONJUGATED
  7. COQ10 [Concomitant]
     Active Substance: UBIDECARENONE
  8. FOLIC ACID. [Concomitant]
     Active Substance: FOLIC ACID
  9. MG [Concomitant]
     Active Substance: MAGNESIUM
  10. ARMOUR THYROID [Concomitant]
     Active Substance: THYROID, PORCINE
  11. ZINC. [Concomitant]
     Active Substance: ZINC
  12. VITAMIN C [Concomitant]
     Active Substance: ASCORBIC ACID
  13. RESVERATROL [Concomitant]
     Active Substance: DIETARY SUPPLEMENT\RESVERATROL
  14. BIOFLAVANOIDS WITH HESPERIDIN [Concomitant]
  15. ACTILIN [Concomitant]
  16. SEL [Concomitant]

REACTIONS (5)
  - Epistaxis [None]
  - Diverticulitis [None]
  - Pancreatitis [None]
  - Headache [None]
  - Brain neoplasm [None]
